FAERS Safety Report 9203801 (Version 1)
Quarter: 2013Q2

REPORT INFORMATION
  Report Type: Other
  Country: DE (occurrence: DE)
  Receive Date: 20130402
  Receipt Date: 20130402
  Transmission Date: 20140414
  Serious: Yes (Other)
  Sender: FDA-Public Use
  Company Number: DE-BRISTOL-MYERS SQUIBB COMPANY-18711812

PATIENT
  Age: 65 Year
  Sex: Female

DRUGS (5)
  1. ARIPIPRAZOLE [Suspect]
  2. ZUCLOPENTHIXOL [Suspect]
     Indication: OFF LABEL USE
  3. PIMOZIDE [Suspect]
  4. RISPERIDONE [Suspect]
  5. OLANZAPINE [Suspect]

REACTIONS (2)
  - Extrapyramidal disorder [Unknown]
  - Metabolic syndrome [Unknown]
